FAERS Safety Report 21993414 (Version 1)
Quarter: 2023Q1

REPORT INFORMATION
  Report Type: Spontaneous
  Country: US (occurrence: US)
  Receive Date: 20230215
  Receipt Date: 20230215
  Transmission Date: 20230418
  Serious: Yes (Hospitalization, Other)
  Sender: FDA-Public Use
  Company Number: US-ENDO PHARMACEUTICALS INC-2023-000838

PATIENT
  Age: 14 Year
  Sex: Male
  Weight: 75 kg

DRUGS (1)
  1. IBUPROFEN [Suspect]
     Active Substance: IBUPROFEN
     Indication: Product used for unknown indication
     Dosage: 50 G (APPROXIMATELY) UNKNOWN
     Route: 048

REACTIONS (12)
  - Circulatory collapse [Recovered/Resolved]
  - Pulmonary haemorrhage [Recovered/Resolved]
  - Areflexia [Recovered/Resolved]
  - Unresponsive to stimuli [Recovered/Resolved]
  - Lactic acidosis [Recovered/Resolved]
  - Respiratory acidosis [Recovered/Resolved]
  - Renal failure [Recovered/Resolved]
  - Gastrointestinal haemorrhage [Recovered/Resolved]
  - Intentional overdose [Recovered/Resolved]
  - Vomiting [Recovered/Resolved]
  - Myocardial necrosis marker increased [Recovered/Resolved]
  - Hepatic enzyme increased [Recovered/Resolved]
